FAERS Safety Report 18452034 (Version 1)
Quarter: 2020Q4

REPORT INFORMATION
  Report Type: Spontaneous
  Country: US (occurrence: US)
  Receive Date: 20201030
  Receipt Date: 20201030
  Transmission Date: 20210114
  Serious: No
  Sender: FDA-Public Use
  Company Number: None

PATIENT
  Age: 77 Year
  Sex: Female
  Weight: 43.54 kg

DRUGS (9)
  1. MELOXICAM. [Concomitant]
     Active Substance: MELOXICAM
  2. TIMOLOL OPHTHALMIC SOLUTION 0.25% [Suspect]
     Active Substance: TIMOLOL
     Indication: NORMAL TENSION GLAUCOMA
     Dosage: RIGHT EYE ONLY
     Route: 047
  3. VITAMIN C [Concomitant]
     Active Substance: ASCORBIC ACID
  4. VIT A [Concomitant]
  5. B1 [Concomitant]
  6. VITAMIN D3 [Concomitant]
     Active Substance: CHOLECALCIFEROL
  7. LATANOPROST. [Concomitant]
     Active Substance: LATANOPROST
  8. CALCIUM [Concomitant]
     Active Substance: CALCIUM
  9. METAMUCIL [Concomitant]
     Active Substance: PLANTAGO SEED

REACTIONS (6)
  - Near death experience [None]
  - Bradycardia [None]
  - Asthenia [None]
  - Decreased activity [None]
  - Fatigue [None]
  - Feeling of despair [None]
